FAERS Safety Report 25177873 (Version 1)
Quarter: 2025Q2

REPORT INFORMATION
  Report Type: Report from Study
  Country: CA (occurrence: CA)
  Receive Date: 20250409
  Receipt Date: 20250409
  Transmission Date: 20250717
  Serious: Yes (Hospitalization)
  Sender: TEVA
  Company Number: CA-TEVA-2023-CA-2865175

PATIENT
  Age: 77 Year
  Sex: Male
  Weight: 72 kg

DRUGS (22)
  1. PREDNISONE [Suspect]
     Active Substance: PREDNISONE
     Indication: Asthma
     Route: 048
  2. PREDNISONE [Suspect]
     Active Substance: PREDNISONE
     Indication: Asthma
     Route: 065
  3. OMALIZUMAB [Suspect]
     Active Substance: OMALIZUMAB
     Indication: Asthma
     Route: 058
  4. OMALIZUMAB [Suspect]
     Active Substance: OMALIZUMAB
     Indication: Asthma
     Route: 058
  5. OMALIZUMAB [Suspect]
     Active Substance: OMALIZUMAB
     Indication: Asthma
     Route: 058
  6. OMALIZUMAB [Suspect]
     Active Substance: OMALIZUMAB
     Indication: Asthma
     Route: 058
  7. OMALIZUMAB [Suspect]
     Active Substance: OMALIZUMAB
     Indication: Asthma
     Route: 058
  8. OMALIZUMAB [Suspect]
     Active Substance: OMALIZUMAB
     Indication: Asthma
     Route: 058
  9. OMALIZUMAB [Suspect]
     Active Substance: OMALIZUMAB
     Indication: Asthma
     Route: 058
  10. ALVESCO [Concomitant]
     Active Substance: CICLESONIDE
     Indication: Asthma
     Dosage: DOSE FORM: AEROSOL, METERED DOSE
     Route: 065
  11. BREO ELLIPTA [Concomitant]
     Active Substance: FLUTICASONE FUROATE\VILANTEROL TRIFENATATE
     Indication: Asthma
     Route: 065
  12. BREO ELLIPTA [Concomitant]
     Active Substance: FLUTICASONE FUROATE\VILANTEROL TRIFENATATE
     Indication: Asthma
     Dosage: DOSE FORM: INHALATION
     Route: 065
  13. FINASTERIDE [Concomitant]
     Active Substance: FINASTERIDE
     Indication: Benign prostatic hyperplasia
     Route: 048
  14. HYDROCHLOROTHIAZIDE [Concomitant]
     Active Substance: HYDROCHLOROTHIAZIDE
     Indication: Hypertension
     Route: 048
  15. METFORMIN [Concomitant]
     Active Substance: METFORMIN HYDROCHLORIDE
     Indication: Type 2 diabetes mellitus
     Route: 048
  16. METFORMIN [Concomitant]
     Active Substance: METFORMIN HYDROCHLORIDE
     Indication: Type 2 diabetes mellitus
     Route: 065
  17. VALSARTAN [Concomitant]
     Active Substance: VALSARTAN
     Indication: Hypertension
     Route: 048
  18. SPIRIVA [Concomitant]
     Active Substance: TIOTROPIUM BROMIDE MONOHYDRATE
     Indication: Hypertension
     Route: 065
  19. SYNTHROID [Concomitant]
     Active Substance: LEVOTHYROXINE SODIUM
     Indication: Hypothyroidism
     Route: 048
  20. TAMSULOSIN [Concomitant]
     Active Substance: TAMSULOSIN
     Indication: Benign prostatic hyperplasia
     Route: 048
  21. VENTOLIN [Concomitant]
     Active Substance: ALBUTEROL SULFATE
     Indication: Asthma
     Route: 065
  22. VENTOLIN [Concomitant]
     Active Substance: ALBUTEROL SULFATE
     Indication: Asthma
     Route: 050

REACTIONS (8)
  - Asthma [Unknown]
  - Bronchitis [Unknown]
  - Dyspnoea [Unknown]
  - Forced expiratory volume decreased [Unknown]
  - Middle insomnia [Unknown]
  - Obstructive airways disorder [Unknown]
  - Pleural fibrosis [Unknown]
  - Weight decreased [Unknown]
